FAERS Safety Report 4702744-0 (Version None)
Quarter: 2005Q2

REPORT INFORMATION
  Report Type: 
  Country: None (occurrence: None)
  Receive Date: 20050629
  Receipt Date: 20050617
  Transmission Date: 20051028
  Serious: Yes (Other)
  Sender: FDA-Public Use
  Company Number: GBWYE754817JUN05

PATIENT
  Age: 65 Year
  Sex: Male

DRUGS (1)
  1. ENBREL [Suspect]
     Indication: ANKYLOSING SPONDYLITIS
     Dosage: 2.5MG, FREQUENCY NOT STATED
     Route: 058

REACTIONS (2)
  - TEMPORAL ARTERITIS [None]
  - VISUAL ACUITY REDUCED [None]
